FAERS Safety Report 24604528 (Version 1)
Quarter: 2024Q4

REPORT INFORMATION
  Report Type: Spontaneous
  Country: CN (occurrence: CN)
  Receive Date: 20241111
  Receipt Date: 20241111
  Transmission Date: 20250114
  Serious: Yes (Hospitalization)
  Sender: BAYER HEALTHCARE PHARMACEUTICALS INC.
  Company Number: CN-BAYER-2024A160460

PATIENT
  Age: 71 Year
  Sex: Male
  Weight: 49 kg

DRUGS (2)
  1. AVELOX [Suspect]
     Active Substance: MOXIFLOXACIN HYDROCHLORIDE
     Indication: Chronic obstructive pulmonary disease
     Dosage: 0.4 G, QD
     Route: 048
     Dates: start: 20241102, end: 20241102
  2. AVELOX [Suspect]
     Active Substance: MOXIFLOXACIN HYDROCHLORIDE
     Indication: Lower respiratory tract infection

REACTIONS (7)
  - Body temperature increased [Recovering/Resolving]
  - Hyperhidrosis [Recovering/Resolving]
  - Flushing [Recovering/Resolving]
  - Tachypnoea [Recovering/Resolving]
  - Chest discomfort [Recovering/Resolving]
  - Dyspnoea [Recovering/Resolving]
  - Wheezing [Recovering/Resolving]

NARRATIVE: CASE EVENT DATE: 20241102
